FAERS Safety Report 24437187 (Version 1)
Quarter: 2024Q4

REPORT INFORMATION
  Report Type: Spontaneous
  Country: DE (occurrence: CA)
  Receive Date: 20241015
  Receipt Date: 20241015
  Transmission Date: 20250114
  Serious: Yes (Death, Life-Threatening, Hospitalization, Disabling, Other)
  Sender: MYLAN
  Company Number: DE-SANDOZ-SDZ2024DE075549

PATIENT
  Age: 80 Year
  Sex: Male
  Weight: 69 kg

DRUGS (78)
  1. AMIODARONE [Suspect]
     Active Substance: AMIODARONE
     Indication: Drug therapy
     Dosage: UNK, QD
     Route: 065
  2. AMIODARONE [Suspect]
     Active Substance: AMIODARONE
     Indication: Ventricular fibrillation
     Dosage: UNK UNK, QD
     Route: 042
  3. AMIODARONE [Suspect]
     Active Substance: AMIODARONE
     Dosage: UNK UNK, QD
     Route: 042
  4. AMIODARONE [Suspect]
     Active Substance: AMIODARONE
     Dosage: 150 MILLIGRAM, QD
     Route: 042
  5. AMIODARONE [Suspect]
     Active Substance: AMIODARONE
     Dosage: 150 MILLIGRAM, QD
     Route: 065
  6. AMIODARONE [Suspect]
     Active Substance: AMIODARONE
     Dosage: 150 MICROGRAM, QD (150 UG, QD)
     Route: 042
  7. AMIODARONE [Suspect]
     Active Substance: AMIODARONE
     Dosage: 150 MICROGRAM, QD (150 UG, QD)
     Route: 042
  8. AMIODARONE [Suspect]
     Active Substance: AMIODARONE
     Dosage: 150 MICROGRAM, QD (150 UG, QD)
     Route: 042
  9. AMIODARONE [Suspect]
     Active Substance: AMIODARONE
     Dosage: 150 MICROGRAM, QD (150 UG, QD)
     Route: 042
  10. AMIODARONE [Suspect]
     Active Substance: AMIODARONE
     Dosage: UNK UNK, QD
     Route: 042
  11. LANSOPRAZOLE [Suspect]
     Active Substance: LANSOPRAZOLE
     Indication: Antacid therapy
     Dosage: 30 MILLIGRAM, QD
     Route: 048
  12. LANSOPRAZOLE [Suspect]
     Active Substance: LANSOPRAZOLE
     Dosage: 30 MILLIGRAM, QD
     Route: 048
  13. LANSOPRAZOLE [Suspect]
     Active Substance: LANSOPRAZOLE
     Dosage: 30 MILLIGRAM, QD
     Route: 048
  14. LANSOPRAZOLE [Suspect]
     Active Substance: LANSOPRAZOLE
     Dosage: 30 MILLIGRAM, QD
     Route: 048
  15. LANSOPRAZOLE [Suspect]
     Active Substance: LANSOPRAZOLE
     Dosage: UNK
     Route: 065
  16. LANSOPRAZOLE [Suspect]
     Active Substance: LANSOPRAZOLE
     Dosage: 30 MILLIGRAM, QD
     Route: 048
  17. GABAPENTIN [Suspect]
     Active Substance: GABAPENTIN
     Indication: Bacterial infection
     Dosage: UNK
     Route: 048
  18. GABAPENTIN [Suspect]
     Active Substance: GABAPENTIN
     Indication: Neuralgia
     Dosage: 100 MILLIGRAM, QD
     Route: 048
  19. GABAPENTIN [Suspect]
     Active Substance: GABAPENTIN
     Dosage: 10 MILLIGRAM, QD
     Route: 048
  20. GABAPENTIN [Suspect]
     Active Substance: GABAPENTIN
     Dosage: 100 MILLIGRAM, QD
     Route: 048
  21. GABAPENTIN [Suspect]
     Active Substance: GABAPENTIN
     Dosage: UNK
     Route: 048
  22. ALBUTEROL [Suspect]
     Active Substance: ALBUTEROL
     Indication: Thrombosis
     Dosage: 4 DOSAGE FORM, QD
     Route: 065
  23. ALBUTEROL [Suspect]
     Active Substance: ALBUTEROL
     Indication: Chronic obstructive pulmonary disease
     Dosage: UNK
     Route: 055
  24. ALBUTEROL [Suspect]
     Active Substance: ALBUTEROL
     Dosage: UNK
     Route: 065
  25. ALBUTEROL [Suspect]
     Active Substance: ALBUTEROL
     Dosage: 2.5 MILLILITER
     Route: 065
  26. ALBUTEROL [Suspect]
     Active Substance: ALBUTEROL
     Dosage: 1 DOSAGE FORM, QID (4DF QD)
     Route: 065
  27. ALBUTEROL [Suspect]
     Active Substance: ALBUTEROL
     Dosage: UNK
     Route: 065
  28. ALBUTEROL [Suspect]
     Active Substance: ALBUTEROL
     Dosage: UNK
     Route: 065
  29. ALBUTEROL [Suspect]
     Active Substance: ALBUTEROL
     Dosage: 4 DOSAGE FORM, QD
     Route: 055
  30. ALBUTEROL [Suspect]
     Active Substance: ALBUTEROL
     Dosage: UNK, QD
     Route: 065
  31. ALBUTEROL [Suspect]
     Active Substance: ALBUTEROL
     Dosage: UNK
     Route: 055
  32. ALBUTEROL [Suspect]
     Active Substance: ALBUTEROL
     Dosage: 4 DOSAGE FORM, QD
     Route: 065
  33. ALBUTEROL [Suspect]
     Active Substance: ALBUTEROL
     Dosage: 2.5 MILLILITER, PRN (4GM/100ML SOLUTION UNASSIGNED)
     Route: 065
  34. ALBUTEROL [Suspect]
     Active Substance: ALBUTEROL
     Dosage: 2.5 MILLILITER, QD
     Route: 065
  35. ONDANSETRON [Suspect]
     Active Substance: ONDANSETRON
     Indication: Vomiting
     Dosage: 36 MILLIGRAM
     Route: 042
  36. ONDANSETRON [Suspect]
     Active Substance: ONDANSETRON
     Dosage: 4 MILLIGRAM, QD
     Route: 042
  37. ONDANSETRON [Suspect]
     Active Substance: ONDANSETRON
     Dosage: 12 MILLIGRAM
     Route: 042
  38. ONDANSETRON [Suspect]
     Active Substance: ONDANSETRON
     Dosage: 12 MILLIGRAM
     Route: 065
  39. ONDANSETRON [Suspect]
     Active Substance: ONDANSETRON
     Dosage: 24 MILLIGRAM
     Route: 065
  40. ONDANSETRON [Suspect]
     Active Substance: ONDANSETRON
     Dosage: 40 MILLIGRAM
     Route: 042
  41. ONDANSETRON [Suspect]
     Active Substance: ONDANSETRON
     Dosage: 4 MILLIGRAM, TID (12 MILLIGRAM QD)
     Route: 042
  42. ONDANSETRON [Suspect]
     Active Substance: ONDANSETRON
     Dosage: UNK
     Route: 042
  43. ONDANSETRON [Suspect]
     Active Substance: ONDANSETRON
     Dosage: 12 MILLIGRAM, TID (36 MILLIGRAM QD)
     Route: 042
  44. ONDANSETRON [Suspect]
     Active Substance: ONDANSETRON
     Dosage: 1 DOSAGE FORM
     Route: 042
  45. ONDANSETRON [Suspect]
     Active Substance: ONDANSETRON
     Dosage: 8 MILLIGRAM, TID (24 MILLIGRAM QD)
     Route: 042
  46. ONDANSETRON [Suspect]
     Active Substance: ONDANSETRON
     Dosage: 12 MILLIGRAM, TID (36 MILLIGRAM QD)
     Route: 042
  47. ONDANSETRON [Suspect]
     Active Substance: ONDANSETRON
     Dosage: 41.14 MILLIGRAM
     Route: 042
  48. ONDANSETRON [Suspect]
     Active Substance: ONDANSETRON
     Dosage: UNK
     Route: 042
  49. ONDANSETRON [Suspect]
     Active Substance: ONDANSETRON
     Dosage: 4 MILLIGRAM
     Route: 042
  50. ONDANSETRON [Suspect]
     Active Substance: ONDANSETRON
     Dosage: 4 MILLIGRAM, TID (12 MG QD)
     Route: 042
  51. ONDANSETRON [Suspect]
     Active Substance: ONDANSETRON
     Dosage: 1 DOSAGE FORM, TID (3DF QD)
     Route: 042
  52. ONDANSETRON [Suspect]
     Active Substance: ONDANSETRON
     Dosage: 40 MILLIGRAM
     Route: 042
  53. ONDANSETRON [Suspect]
     Active Substance: ONDANSETRON
     Dosage: 36 MILLIGRAM
     Route: 042
  54. CEFTRIAXONE [Suspect]
     Active Substance: CEFTRIAXONE
     Indication: Bacterial infection
     Dosage: 2 MILLIGRAM
     Route: 042
  55. CEFTRIAXONE [Suspect]
     Active Substance: CEFTRIAXONE
     Dosage: 2 GRAM, QD
     Route: 042
  56. CEFTRIAXONE [Suspect]
     Active Substance: CEFTRIAXONE
     Dosage: 2 GRAM, QD
     Route: 042
  57. CEFTRIAXONE [Suspect]
     Active Substance: CEFTRIAXONE
     Dosage: UNK
     Route: 042
  58. CEFTRIAXONE [Suspect]
     Active Substance: CEFTRIAXONE
     Dosage: 2 GRAM
     Route: 042
  59. CEFTRIAXONE [Suspect]
     Active Substance: CEFTRIAXONE
     Dosage: 2 GRAM
     Route: 042
  60. CEFTRIAXONE [Suspect]
     Active Substance: CEFTRIAXONE
     Dosage: UNK UNK, QD
     Route: 042
  61. CEFTRIAXONE [Suspect]
     Active Substance: CEFTRIAXONE
     Dosage: UNK
     Route: 042
  62. CEFTRIAXONE [Suspect]
     Active Substance: CEFTRIAXONE
     Dosage: UNK
     Route: 042
  63. SIMVASTATIN [Suspect]
     Active Substance: SIMVASTATIN
     Indication: Blood cholesterol increased
     Dosage: UNK
     Route: 048
  64. SIMVASTATIN [Suspect]
     Active Substance: SIMVASTATIN
     Indication: Vitamin supplementation
     Dosage: UNK
     Route: 048
  65. SIMVASTATIN [Suspect]
     Active Substance: SIMVASTATIN
     Dosage: UNK
     Route: 065
  66. SIMVASTATIN [Suspect]
     Active Substance: SIMVASTATIN
     Dosage: 40 MILLIGRAM, QD
     Route: 048
  67. SIMVASTATIN [Suspect]
     Active Substance: SIMVASTATIN
     Dosage: 40 MILLIGRAM, QD
     Route: 048
  68. HYDROCORTISONE [Suspect]
     Active Substance: HYDROCORTISONE
     Indication: Angioedema
     Dosage: HYDROCORTISONE ACETATE
     Route: 065
  69. HYDROCORTISONE [Suspect]
     Active Substance: HYDROCORTISONE
     Dosage: 100 MILLIGRAM
     Route: 065
  70. XYLOMETAZOLINE [Suspect]
     Active Substance: XYLOMETAZOLINE
     Indication: Dyspnoea
     Dosage: UNK
     Route: 065
  71. METAMIZOLE SODIUM [Suspect]
     Active Substance: METAMIZOLE SODIUM
     Indication: Vitamin supplementation
     Dosage: 5 MILLIGRAM, QD
     Route: 042
  72. HYDROMORPHONE [Suspect]
     Active Substance: HYDROMORPHONE
     Indication: Analgesic therapy
     Dosage: 1 MILLIGRAM
     Route: 058
  73. HYDROMORPHONE [Suspect]
     Active Substance: HYDROMORPHONE
     Dosage: 6 MILLIGRAM
     Route: 058
  74. HYDROMORPHONE [Suspect]
     Active Substance: HYDROMORPHONE
     Dosage: 1 MILLIGRAM
     Route: 058
  75. HYDROMORPHONE [Suspect]
     Active Substance: HYDROMORPHONE
     Dosage: 1 MILLIGRAM
     Route: 058
  76. HYDROMORPHONE [Suspect]
     Active Substance: HYDROMORPHONE
     Dosage: 6 MILLIGRAM, QID (24 MILLIGRAM QD)
     Route: 058
  77. HYDROMORPHONE [Suspect]
     Active Substance: HYDROMORPHONE
     Dosage: 1 MILLIGRAM
     Route: 058
  78. HYDROMORPHONE [Suspect]
     Active Substance: HYDROMORPHONE
     Indication: Analgesic therapy
     Dosage: 250 MILLIGRAM, QD
     Route: 042

REACTIONS (10)
  - Pulmonary embolism [Fatal]
  - Condition aggravated [Fatal]
  - Drug intolerance [Fatal]
  - Neuralgia [Fatal]
  - Analgesic therapy [Fatal]
  - Blood uric acid increased [Fatal]
  - Stress [Fatal]
  - Drug hypersensitivity [Fatal]
  - Off label use [Fatal]
  - Intentional product misuse [Unknown]
